FAERS Safety Report 7097012-9 (Version None)
Quarter: 2010Q4

REPORT INFORMATION
  Report Type: 
  Country: None (occurrence: None)
  Receive Date: 20101111
  Receipt Date: 20091228
  Transmission Date: 20110411
  Serious: No
  Sender: FDA-Public Use
  Company Number: US-KINGPHARMUSA00001-K200901630

PATIENT
  Age: 53 Year
  Sex: Female

DRUGS (2)
  1. EMBEDA [Suspect]
     Indication: BACK PAIN
     Dosage: 20 MG, BID
     Route: 048
     Dates: start: 20091130, end: 20091201
  2. BENADRYL [Suspect]
     Indication: URTICARIA
     Dosage: UNK
     Route: 048
     Dates: start: 20091201

REACTIONS (3)
  - HYPERSENSITIVITY [None]
  - SOMNOLENCE [None]
  - URTICARIA [None]
